FAERS Safety Report 23423097 (Version 1)
Quarter: 2024Q1

REPORT INFORMATION
  Report Type: Spontaneous
  Country: US (occurrence: None)
  Receive Date: 20240119
  Receipt Date: 20240119
  Transmission Date: 20240409
  Serious: Yes (Death)
  Sender: FDA-Public Use
  Company Number: None

PATIENT
  Age: 45 Year
  Sex: Male
  Weight: 88 kg

DRUGS (1)
  1. HYDRALAZINE [Suspect]
     Active Substance: HYDRALAZINE HYDROCHLORIDE
     Indication: Hypertension
     Dosage: OTHER QUANTITY : 1 TABLET;?FREQUENCY : 3 TIMES A DAY;?
     Route: 048
     Dates: start: 202101, end: 202309

REACTIONS (11)
  - Pulmonary haemorrhage [None]
  - Anaemia [None]
  - Lupus-like syndrome [None]
  - Renal failure [None]
  - Seizure [None]
  - Cerebrovascular accident [None]
  - Rash [None]
  - Swelling [None]
  - Fatigue [None]
  - Arthralgia [None]
  - Dialysis [None]

NARRATIVE: CASE EVENT DATE: 20231117
